FAERS Safety Report 4272880-4 (Version None)
Quarter: 2004Q1

REPORT INFORMATION
  Report Type: 
  Country: None (occurrence: None)
  Receive Date: 20040114
  Receipt Date: 20040102
  Transmission Date: 20041129
  Serious: Yes (Death, Hospitalization)
  Sender: FDA-Public Use
  Company Number: 200400145

PATIENT
  Age: 39 Year
  Sex: Female

DRUGS (2)
  1. ACETAMINOPHEN [Suspect]
     Dosage: PO
     Route: 048
  2. DICLOFENAC SODIUM [Suspect]
     Dosage: 0.5 G

REACTIONS (19)
  - ALPHA TUMOUR NECROSIS FACTOR INCREASED [None]
  - ANURIA [None]
  - BLOOD CREATINE PHOSPHOKINASE INCREASED [None]
  - BLOOD LACTIC ACID INCREASED [None]
  - ELECTROCARDIOGRAM ST SEGMENT ELEVATION [None]
  - ENCEPHALOPATHY [None]
  - ENDOTHELIN INCREASED [None]
  - GASTROINTESTINAL ISCHAEMIA [None]
  - HEPATIC FAILURE [None]
  - INTERLEUKIN LEVEL INCREASED [None]
  - MULTIPLE DRUG OVERDOSE [None]
  - MYOCARDIAL ISCHAEMIA [None]
  - PANCREATITIS NECROTISING [None]
  - PERIPHERAL VASCULAR DISORDER [None]
  - POISONING DELIBERATE [None]
  - SHOCK [None]
  - SYSTEMIC INFLAMMATORY RESPONSE SYNDROME [None]
  - VASOCONSTRICTION [None]
  - VENTRICULAR FIBRILLATION [None]
